FAERS Safety Report 7733580-9 (Version None)
Quarter: 2011Q3

REPORT INFORMATION
  Report Type: 
  Country: None (occurrence: None)
  Receive Date: 20110901
  Receipt Date: 20110819
  Transmission Date: 20111222
  Serious: Yes (Disabling)
  Sender: FDA-Public Use
  Company Number: GB-ACCORD-010378

PATIENT
  Age: 8 Decade
  Sex: Female

DRUGS (3)
  1. ASPIRIN [Concomitant]
  2. PERINDOPRIL ERBUMINE [Concomitant]
  3. SIMVASTATIN [Suspect]
     Indication: PRODUCT USED FOR UNKNOWN INDICATION
     Dosage: 40.00-MG-1.00 TIMES PER-1.0DAYS /ORAL
     Route: 048
     Dates: start: 20070101

REACTIONS (1)
  - HYPOKALAEMIA [None]
